FAERS Safety Report 7219672-1 (Version None)
Quarter: 2011Q1

REPORT INFORMATION
  Report Type: 
  Country: None (occurrence: None)
  Receive Date: 20110111
  Receipt Date: 20101229
  Transmission Date: 20110831
  Serious: Yes (Hospitalization)
  Sender: FDA-Public Use
  Company Number: PHHY2010US89239

PATIENT
  Sex: Female

DRUGS (1)
  1. DIOVAN [Suspect]
     Dosage: 160 MG, 1 PER DAY (HALF IN THE MORNING AND HALF IN THE EVENING)

REACTIONS (1)
  - MUSCULOSKELETAL DISORDER [None]
